FAERS Safety Report 5063979-3 (Version None)
Quarter: 2006Q3

REPORT INFORMATION
  Report Type: 
  Country: None (occurrence: None)
  Receive Date: 20060703
  Receipt Date: 20051017
  Transmission Date: 20061208
  Serious: No
  Sender: FDA-Public Use
  Company Number: 2005S1010253

PATIENT
  Age: 24 Year
  Sex: Female

DRUGS (5)
  1. CLOZAPINE [Suspect]
     Dosage: 500 MG;HS;PO
     Route: 048
     Dates: start: 20040127
  2. LEVOTHYROXINE SODIUM [Concomitant]
  3. TOPIRAMATE [Concomitant]
  4. TIOTIXENE [Concomitant]
  5. TEGASEROD MALEATE [Concomitant]

REACTIONS (1)
  - GRANULOCYTOPENIA [None]
